FAERS Safety Report 8402380-9 (Version None)
Quarter: 2012Q2

REPORT INFORMATION
  Report Type: 
  Country: None (occurrence: None)
  Receive Date: 20120529
  Receipt Date: 20090427
  Transmission Date: 20120825
  Serious: Yes (Hospitalization)
  Sender: FDA-Public Use
  Company Number: 005418

PATIENT
  Age: 80 Year
  Sex: Female

DRUGS (3)
  1. PLETAL [Suspect]
     Indication: CEREBRAL INFARCTION
     Dosage: , ORAL
     Route: 048
  2. GLORIAMIN (AZULENE SODIUM SULFONATE, LEVOGLUTAMIDE) [Concomitant]
  3. SERMION (NICERGOLINE) [Concomitant]

REACTIONS (2)
  - HYPERSENSITIVITY [None]
  - ERYTHEMA [None]
